FAERS Safety Report 6110750-7 (Version None)
Quarter: 2009Q1

REPORT INFORMATION
  Report Type: 
  Country: None (occurrence: None)
  Receive Date: 20090309
  Receipt Date: 20090223
  Transmission Date: 20090719
  Serious: Yes (Hospitalization)
  Sender: FDA-Public Use
  Company Number: 233424J08USA

PATIENT
  Age: 53 Year
  Sex: Female

DRUGS (5)
  1. REBIF [Suspect]
     Indication: MULTIPLE SCLEROSIS
     Dosage: 44 MCG, 3 IN 1 WEEKS, SUBCUTANEOUS
     Route: 058
     Dates: start: 20070801
  2. TYLENOL (COTYLENOL) [Concomitant]
  3. SINGULAIR [Concomitant]
  4. EFFEXOR XR [Concomitant]
  5. CLONAZEPAM [Concomitant]

REACTIONS (1)
  - CONVERSION DISORDER [None]
